FAERS Safety Report 11767264 (Version 2)
Quarter: 2018Q1

REPORT INFORMATION
  Report Type: Spontaneous
  Country: US (occurrence: US)
  Receive Date: 20151123
  Receipt Date: 20180307
  Transmission Date: 20180508
  Serious: No
  Sender: FDA-Public Use
  Company Number: US-ASTRAZENECA-2015SF09936

PATIENT
  Age: 780 Month
  Sex: Female
  Weight: 68 kg

DRUGS (6)
  1. SYMBICORT [Suspect]
     Active Substance: BUDESONIDE\FORMOTEROL FUMARATE DIHYDRATE
     Indication: CHRONIC OBSTRUCTIVE PULMONARY DISEASE
     Dosage: 160 4.5MCG 2 PUFFS TWICE A DAY
     Route: 055
     Dates: start: 20150320
  2. PROAIR HFA [Concomitant]
     Active Substance: ALBUTEROL SULFATE
     Indication: CHRONIC OBSTRUCTIVE PULMONARY DISEASE
     Dosage: 2 PUFFS 4 TIMES A DAY AS NEEDED
     Dates: start: 201510
  3. PREDNISONE. [Concomitant]
     Active Substance: PREDNISONE
     Indication: INFLAMMATION
  4. IPRATROPIUM BROMIDE. [Concomitant]
     Active Substance: IPRATROPIUM BROMIDE
  5. TUDORZA PRESSAIR [Suspect]
     Active Substance: ACLIDINIUM BROMIDE
     Indication: CHRONIC OBSTRUCTIVE PULMONARY DISEASE
     Dosage: 400 MCG 1 PUFF IN THE MORNING AND 1 PUFF IN THE EVENING
     Route: 055
  6. ALBUTEROL SULFATE. [Concomitant]
     Active Substance: ALBUTEROL SULFATE
     Indication: CHRONIC OBSTRUCTIVE PULMONARY DISEASE
     Dosage: INHALATION SOLUTION NEBULIZER 0.5 MG PER 3 MG PER 3 ML AS NEEDED

REACTIONS (4)
  - Intentional product misuse [Unknown]
  - Drug dose omission [Unknown]
  - Respiratory disorder [Unknown]
  - Product quality issue [Unknown]

NARRATIVE: CASE EVENT DATE: 201510
